FAERS Safety Report 22198993 (Version 1)
Quarter: 2023Q2

REPORT INFORMATION
  Report Type: Spontaneous
  Country: US (occurrence: US)
  Receive Date: 20230411
  Receipt Date: 20230411
  Transmission Date: 20230721
  Serious: Yes (Other)
  Sender: FDA-Public Use
  Company Number: US-Stemline Therapeutics, Inc.-2023ST000383

PATIENT
  Sex: Female

DRUGS (1)
  1. ORSERDU [Suspect]
     Active Substance: ELACESTRANT
     Indication: Product used for unknown indication
     Route: 048

REACTIONS (7)
  - Metastases to skin [Unknown]
  - Pruritus [Unknown]
  - Restless legs syndrome [Unknown]
  - Blood alkaline phosphatase decreased [Unknown]
  - Nausea [Unknown]
  - Blood cholesterol increased [Unknown]
  - Fatigue [Unknown]
